FAERS Safety Report 24428350 (Version 1)
Quarter: 2024Q4

REPORT INFORMATION
  Report Type: Report from Study
  Country: US (occurrence: US)
  Receive Date: 20241011
  Receipt Date: 20241011
  Transmission Date: 20250115
  Serious: Yes (Death)
  Sender: BAYER
  Company Number: US-BAYER-2024A145236

PATIENT
  Age: 68 Year
  Sex: Female

DRUGS (1)
  1. ADEMPAS [Suspect]
     Active Substance: RIOCIGUAT
     Indication: Pulmonary hypertension
     Dosage: UNK
     Route: 048
     Dates: start: 201501, end: 202410

REACTIONS (1)
  - Death [Fatal]

NARRATIVE: CASE EVENT DATE: 20241007
